FAERS Safety Report 15883467 (Version 1)
Quarter: 2019Q1

REPORT INFORMATION
  Report Type: Spontaneous
  Country: US (occurrence: US)
  Receive Date: 20190107
  Receipt Date: 20190107
  Transmission Date: 20190417
  Serious: No
  Sender: FDA-Public Use
  Company Number: None

PATIENT
  Age: 72 Year
  Sex: Male

DRUGS (2)
  1. PREDNISONE. [Concomitant]
     Active Substance: PREDNISONE
  2. ABIRATERONE 250MG TAB [Suspect]
     Active Substance: ABIRATERONE
     Route: 048
     Dates: start: 201708

REACTIONS (6)
  - Pruritus [None]
  - Weight increased [None]
  - Abdominal distension [None]
  - Dysgeusia [None]
  - Abdominal discomfort [None]
  - Eye pruritus [None]

NARRATIVE: CASE EVENT DATE: 20190105
